FAERS Safety Report 18926809 (Version 15)
Quarter: 2023Q2

REPORT INFORMATION
  Report Type: Report from Study
  Country: JP (occurrence: JP)
  Receive Date: 20210223
  Receipt Date: 20230526
  Transmission Date: 20230722
  Serious: Yes (Death, Hospitalization)
  Sender: FDA-Public Use
  Company Number: NVSC2021JP035151

PATIENT
  Age: 72 Year
  Sex: Male
  Weight: 59.1 kg

DRUGS (84)
  1. KYMRIAH [Suspect]
     Active Substance: TISAGENLECLEUCEL
     Indication: Follicular lymphoma
     Dosage: 1.1214X10E8, CELLS
     Route: 042
     Dates: start: 20200210
  2. INSULIN HUMAN [Concomitant]
     Active Substance: INSULIN HUMAN
     Indication: Hyperglycaemia
     Dosage: UNK
     Route: 065
     Dates: start: 20210129
  3. INSULIN HUMAN [Concomitant]
     Active Substance: INSULIN HUMAN
     Indication: Prophylaxis
     Dosage: UNK
     Route: 065
     Dates: start: 20210202, end: 20210202
  4. INSULIN HUMAN [Concomitant]
     Active Substance: INSULIN HUMAN
     Dosage: UNK
     Route: 065
     Dates: start: 20210204, end: 20210204
  5. INSULIN HUMAN [Concomitant]
     Active Substance: INSULIN HUMAN
     Dosage: UNK
     Route: 065
     Dates: start: 20210205, end: 20210206
  6. INSULIN HUMAN [Concomitant]
     Active Substance: INSULIN HUMAN
     Dosage: UNK
     Route: 065
     Dates: start: 20210207, end: 20210212
  7. INSULIN HUMAN [Concomitant]
     Active Substance: INSULIN HUMAN
     Dosage: UNK
     Route: 065
     Dates: start: 20210213
  8. ALBUMIN HUMAN [Concomitant]
     Active Substance: ALBUMIN HUMAN
     Indication: Hypoalbuminaemia
     Dosage: 25 %
     Route: 065
     Dates: start: 20210124, end: 20210124
  9. ALBUMIN HUMAN [Concomitant]
     Active Substance: ALBUMIN HUMAN
     Dosage: 25 %
     Route: 065
     Dates: start: 20210202, end: 20210208
  10. ALBUMIN HUMAN [Concomitant]
     Active Substance: ALBUMIN HUMAN
     Dosage: 25 %
     Route: 065
     Dates: start: 20210210, end: 20210210
  11. ALBUMIN HUMAN [Concomitant]
     Active Substance: ALBUMIN HUMAN
     Dosage: 25 %
     Route: 065
     Dates: start: 20210212, end: 20210212
  12. ALBUMIN HUMAN [Concomitant]
     Active Substance: ALBUMIN HUMAN
     Dosage: 25 %
     Route: 065
     Dates: start: 20210214, end: 20210214
  13. ALBUMIN HUMAN [Concomitant]
     Active Substance: ALBUMIN HUMAN
     Dosage: 25 %
     Route: 065
     Dates: start: 20210215, end: 20210215
  14. ALBUMIN HUMAN [Concomitant]
     Active Substance: ALBUMIN HUMAN
     Dosage: 5 %
     Route: 065
     Dates: start: 20210217, end: 20210217
  15. SODIUM BICARBONATE [Concomitant]
     Active Substance: SODIUM BICARBONATE
     Indication: Acute kidney injury
     Dosage: UNK
     Route: 065
     Dates: start: 20210215, end: 20210215
  16. FILGRASTIM [Concomitant]
     Active Substance: FILGRASTIM
     Indication: Neutropenia
     Dosage: UNK
     Route: 065
     Dates: start: 20201128
  17. MAGNESIUM SULFATE [Concomitant]
     Active Substance: MAGNESIUM SULFATE
     Indication: Hypomagnesaemia
     Dosage: UNK
     Route: 065
     Dates: start: 20210131, end: 20210131
  18. MAGNESIUM SULFATE [Concomitant]
     Active Substance: MAGNESIUM SULFATE
     Dosage: UNK
     Route: 065
     Dates: start: 20210216, end: 20210216
  19. TEICOPLANIN [Concomitant]
     Active Substance: TEICOPLANIN
     Indication: Pneumonia
     Dosage: UNK
     Route: 065
     Dates: start: 20210123, end: 20210202
  20. TEICOPLANIN [Concomitant]
     Active Substance: TEICOPLANIN
     Indication: Sepsis
     Dosage: UNK
     Route: 065
     Dates: start: 20210204, end: 20210205
  21. TEICOPLANIN [Concomitant]
     Active Substance: TEICOPLANIN
     Dosage: UNK
     Route: 065
     Dates: start: 20210207, end: 20210207
  22. TEICOPLANIN [Concomitant]
     Active Substance: TEICOPLANIN
     Dosage: UNK
     Route: 065
     Dates: start: 20210208, end: 20210210
  23. TEICOPLANIN [Concomitant]
     Active Substance: TEICOPLANIN
     Dosage: UNK
     Route: 065
     Dates: start: 20210212, end: 20210212
  24. TEICOPLANIN [Concomitant]
     Active Substance: TEICOPLANIN
     Dosage: UNK
     Route: 065
     Dates: start: 20210215
  25. THROMBOMODULIN ALFA [Concomitant]
     Active Substance: THROMBOMODULIN ALFA
     Indication: Coagulopathy
     Dosage: UNK
     Route: 065
     Dates: start: 20210121, end: 20210202
  26. PENTAMIDINE ISETHIONATE [Concomitant]
     Active Substance: PENTAMIDINE ISETHIONATE
     Indication: Antifungal prophylaxis
     Dosage: UNK
     Route: 065
     Dates: start: 20210126, end: 20210126
  27. DALTEPARIN SODIUM [Concomitant]
     Active Substance: DALTEPARIN SODIUM
     Indication: Coagulopathy
     Dosage: UNK
     Route: 065
     Dates: start: 20210203, end: 20210207
  28. DALTEPARIN SODIUM [Concomitant]
     Active Substance: DALTEPARIN SODIUM
     Dosage: UNK
     Route: 065
     Dates: start: 20210208, end: 20210208
  29. GABEXATE MESYLATE [Concomitant]
     Active Substance: GABEXATE MESYLATE
     Indication: Coagulopathy
     Dosage: UNK
     Route: 065
     Dates: start: 20210208, end: 20210210
  30. GABEXATE MESYLATE [Concomitant]
     Active Substance: GABEXATE MESYLATE
     Indication: Amylase increased
     Dosage: UNK
     Route: 065
     Dates: start: 20210208
  31. OMEPRAZOLE SODIUM [Concomitant]
     Active Substance: OMEPRAZOLE SODIUM
     Indication: Gastrointestinal ulcer
     Dosage: UNK
     Route: 065
     Dates: start: 20210208
  32. ACYCLOVIR [Concomitant]
     Active Substance: ACYCLOVIR
     Indication: Gastrointestinal ulcer
     Dosage: UNK
     Route: 065
     Dates: start: 20210208, end: 20210208
  33. ACYCLOVIR [Concomitant]
     Active Substance: ACYCLOVIR
     Dosage: UNK
     Route: 065
     Dates: start: 20210209, end: 20210212
  34. ACYCLOVIR [Concomitant]
     Active Substance: ACYCLOVIR
     Dosage: UNK
     Route: 065
     Dates: start: 20210215
  35. LEVOFLOXACIN HEMIHYDRATE [Concomitant]
     Active Substance: LEVOFLOXACIN
     Indication: Pneumonia
     Dosage: UNK
     Route: 065
     Dates: start: 20210204
  36. MEROPENEM [Concomitant]
     Active Substance: MEROPENEM
     Indication: Pneumonia
     Dosage: UNK
     Route: 065
     Dates: start: 20201223
  37. MEROPENEM [Concomitant]
     Active Substance: MEROPENEM
     Dosage: UNK
     Route: 065
     Dates: start: 20210210
  38. SOLDEM 3A [Concomitant]
     Active Substance: CARBOHYDRATES\POTASSIUM CHLORIDE\SODIUM CHLORIDE\SODIUM LACTATE
     Indication: Renal disorder prophylaxis
     Dosage: UNK
     Route: 065
     Dates: start: 20210126, end: 20210129
  39. AMINO ACIDS\DEXTROSE\ELECTROLYTES NOS\MINERALS\VITAMINS [Concomitant]
     Active Substance: AMINO ACIDS\DEXTROSE\ELECTROLYTES NOS\MINERALS\VITAMINS
     Indication: Weight decreased
     Dosage: UNK
     Route: 065
     Dates: start: 20210202, end: 20210202
  40. DEXTROSE\SODIUM CHLORIDE\SODIUM LACTATE [Concomitant]
     Active Substance: DEXTROSE\SODIUM CHLORIDE\SODIUM LACTATE
     Indication: Renal disorder prophylaxis
     Dosage: UNK
     Route: 065
     Dates: start: 20210202, end: 20210202
  41. DEXTROSE\SODIUM CHLORIDE\SODIUM LACTATE [Concomitant]
     Active Substance: DEXTROSE\SODIUM CHLORIDE\SODIUM LACTATE
     Dosage: UNK
     Route: 065
     Dates: start: 20210203, end: 20210204
  42. DEXTROSE\SODIUM CHLORIDE\SODIUM LACTATE [Concomitant]
     Active Substance: DEXTROSE\SODIUM CHLORIDE\SODIUM LACTATE
     Dosage: UNK
     Route: 065
     Dates: start: 20210205, end: 20210208
  43. SODIUM CHLORIDE [Concomitant]
     Active Substance: SODIUM CHLORIDE
     Indication: Sepsis
     Dosage: UNK
     Route: 065
     Dates: start: 20210129, end: 20210129
  44. SODIUM CHLORIDE [Concomitant]
     Active Substance: SODIUM CHLORIDE
     Indication: Hypernatraemia
     Dosage: UNK
     Route: 065
     Dates: start: 20210130, end: 20210130
  45. SODIUM CHLORIDE [Concomitant]
     Active Substance: SODIUM CHLORIDE
     Dosage: UNK
     Route: 065
     Dates: start: 20210131, end: 20210131
  46. SODIUM CHLORIDE [Concomitant]
     Active Substance: SODIUM CHLORIDE
     Dosage: UNK
     Route: 065
     Dates: start: 20210201, end: 20210201
  47. SODIUM CHLORIDE [Concomitant]
     Active Substance: SODIUM CHLORIDE
     Dosage: UNK
     Route: 065
     Dates: start: 20210202, end: 20210202
  48. DEXTROSE [Concomitant]
     Active Substance: DEXTROSE\DEXTROSE MONOHYDRATE
     Indication: Hypernatraemia
     Dosage: UNK
     Route: 065
     Dates: start: 20210129, end: 20210129
  49. DEXTROSE [Concomitant]
     Active Substance: DEXTROSE\DEXTROSE MONOHYDRATE
     Indication: Weight decreased
     Dosage: UNK
     Route: 065
     Dates: start: 20210130, end: 20210130
  50. DEXTROSE [Concomitant]
     Active Substance: DEXTROSE\DEXTROSE MONOHYDRATE
     Dosage: UNK
     Route: 065
     Dates: start: 20210131, end: 20210131
  51. DEXTROSE [Concomitant]
     Active Substance: DEXTROSE\DEXTROSE MONOHYDRATE
     Dosage: UNK
     Route: 065
     Dates: start: 20210201, end: 20210201
  52. DEXTROSE [Concomitant]
     Active Substance: DEXTROSE\DEXTROSE MONOHYDRATE
     Dosage: UNK
     Route: 065
     Dates: start: 20210202, end: 20210202
  53. DEXTROSE [Concomitant]
     Active Substance: DEXTROSE\DEXTROSE MONOHYDRATE
     Dosage: UNK
     Route: 065
     Dates: start: 20210204
  54. DEXCHLORPHENIRAMINE MALEATE [Concomitant]
     Active Substance: DEXCHLORPHENIRAMINE MALEATE
     Indication: Prophylaxis
     Dosage: UNK
     Route: 065
     Dates: start: 20210108
  55. POTASSIUM CHLORIDE [Concomitant]
     Active Substance: POTASSIUM CHLORIDE
     Indication: Hypokalaemia
     Dosage: UNK
     Route: 065
     Dates: start: 20210121, end: 20210121
  56. POTASSIUM CHLORIDE [Concomitant]
     Active Substance: POTASSIUM CHLORIDE
     Dosage: UNK
     Route: 065
     Dates: start: 20210122, end: 20210124
  57. POTASSIUM CHLORIDE [Concomitant]
     Active Substance: POTASSIUM CHLORIDE
     Dosage: UNK
     Route: 065
     Dates: start: 20210125, end: 20210129
  58. POTASSIUM CHLORIDE [Concomitant]
     Active Substance: POTASSIUM CHLORIDE
     Dosage: UNK
     Route: 065
     Dates: start: 20210131, end: 20210131
  59. VITAMINS [Concomitant]
     Active Substance: VITAMINS
     Indication: Weight decreased
     Dosage: UNK
     Route: 065
     Dates: start: 20210204
  60. CUPRIC SULFATE\FERRIC CHLORIDE\MANGANESE CHLORIDE\POTASSIUM IODIDE\ZIN [Concomitant]
     Active Substance: CUPRIC SULFATE\FERRIC CHLORIDE\MANGANESE CHLORIDE\POTASSIUM IODIDE\ZINC SULFATE
     Indication: Weight decreased
     Dosage: UNK
     Route: 065
     Dates: start: 20210204
  61. AMINO ACIDS\ELECTROLYTES NOS [Concomitant]
     Active Substance: AMINO ACIDS\ELECTROLYTES NOS
     Indication: Weight decreased
     Dosage: UNK
     Route: 065
     Dates: start: 20210204
  62. CALCIUM GLUCONATE [Concomitant]
     Active Substance: CALCIUM GLUCONATE
     Indication: Acute kidney injury
     Dosage: UNK
     Route: 065
     Dates: start: 20210205, end: 20210205
  63. ANTITHROMBIN GAMMA [Concomitant]
     Indication: Coagulopathy
     Dosage: UNK
     Route: 065
     Dates: start: 20210204, end: 20210209
  64. ANTITHROMBIN GAMMA [Concomitant]
     Dosage: UNK
     Route: 065
     Dates: start: 20210212, end: 20210214
  65. DEXAMETHASONE SODIUM PHOSPHATE [Concomitant]
     Active Substance: DEXAMETHASONE SODIUM PHOSPHATE
     Indication: Encephalopathy
     Dosage: UNK
     Route: 065
     Dates: start: 20210121, end: 20210122
  66. DEXAMETHASONE SODIUM PHOSPHATE [Concomitant]
     Active Substance: DEXAMETHASONE SODIUM PHOSPHATE
     Dosage: UNK
     Route: 065
     Dates: start: 20210123, end: 20210207
  67. DEXAMETHASONE SODIUM PHOSPHATE [Concomitant]
     Active Substance: DEXAMETHASONE SODIUM PHOSPHATE
     Dosage: UNK
     Route: 065
     Dates: start: 20210208, end: 20210214
  68. DEXAMETHASONE SODIUM PHOSPHATE [Concomitant]
     Active Substance: DEXAMETHASONE SODIUM PHOSPHATE
     Dosage: UNK
     Route: 065
     Dates: start: 20191210, end: 20191213
  69. DEXAMETHASONE SODIUM PHOSPHATE [Concomitant]
     Active Substance: DEXAMETHASONE SODIUM PHOSPHATE
     Dosage: UNK
     Route: 065
  70. CYCLOSPORINE [Concomitant]
     Active Substance: CYCLOSPORINE
     Indication: Haemophagocytic lymphohistiocytosis
     Dosage: UNK
     Route: 065
     Dates: start: 20210213
  71. CYCLOSPORINE [Concomitant]
     Active Substance: CYCLOSPORINE
     Dosage: UNK
     Route: 065
     Dates: start: 20210213, end: 20210214
  72. CYCLOSPORINE [Concomitant]
     Active Substance: CYCLOSPORINE
     Dosage: UNK
     Route: 065
     Dates: start: 20210215, end: 20210215
  73. LANDIOLOL HYDROCHLORIDE [Concomitant]
     Active Substance: LANDIOLOL HYDROCHLORIDE
     Indication: Atrial fibrillation
     Dosage: UNK
     Route: 065
     Dates: start: 20210214, end: 20210214
  74. AMIODARONE HYDROCHLORIDE [Concomitant]
     Active Substance: AMIODARONE HYDROCHLORIDE
     Indication: Atrial fibrillation
     Dosage: UNK
     Route: 065
     Dates: start: 20210217, end: 20210217
  75. VASOPRESSIN [Concomitant]
     Active Substance: VASOPRESSIN
     Indication: Hypotension
     Dosage: UNK
     Route: 065
  76. HEPARINOID [Concomitant]
     Indication: Dry skin
     Dosage: UNK
     Route: 065
     Dates: start: 20210107
  77. HEPARINOID [Concomitant]
     Dosage: UNK
     Route: 065
     Dates: start: 20210126
  78. WHITE PETROLATUM [Concomitant]
     Active Substance: PETROLATUM
     Indication: Dry skin
     Dosage: UNK
     Route: 065
     Dates: start: 20210116
  79. ZINC OXIDE [Concomitant]
     Active Substance: ZINC OXIDE
     Indication: Skin ulcer
     Dosage: UNK
     Route: 065
     Dates: start: 20210206
  80. CASPOFUNGIN ACETATE [Concomitant]
     Active Substance: CASPOFUNGIN ACETATE
     Indication: Pneumonia
     Dosage: UNK
     Route: 065
     Dates: start: 20210121, end: 20210122
  81. CASPOFUNGIN ACETATE [Concomitant]
     Active Substance: CASPOFUNGIN ACETATE
     Dosage: UNK
     Route: 065
     Dates: start: 20210203, end: 20210203
  82. CASPOFUNGIN ACETATE [Concomitant]
     Active Substance: CASPOFUNGIN ACETATE
     Dosage: UNK
     Route: 065
     Dates: start: 20210204
  83. PIPERAZINE HYDRATE [Concomitant]
     Indication: Febrile neutropenia
     Dosage: UNK
     Route: 065
     Dates: start: 20200216, end: 20200309
  84. PIPERAZINE HYDRATE [Concomitant]
     Indication: Cytokine release syndrome

REACTIONS (1)
  - Cytokine release syndrome [Fatal]

NARRATIVE: CASE EVENT DATE: 20210211
